FAERS Safety Report 5714872-1 (Version None)
Quarter: 2008Q2

REPORT INFORMATION
  Report Type: 
  Country: None (occurrence: None)
  Receive Date: 20080423
  Receipt Date: 20070911
  Transmission Date: 20081010
  Serious: Yes (Hospitalization)
  Sender: FDA-Public Use
  Company Number: US-BAYER-US-2007-034154

PATIENT
  Age: 71 Year
  Sex: Male
  Weight: 73 kg

DRUGS (3)
  1. LEUKINE [Suspect]
     Indication: ACUTE MYELOID LEUKAEMIA
     Route: 058
     Dates: start: 20070910, end: 20070910
  2. MYLOTARG [Concomitant]
     Indication: ACUTE MYELOID LEUKAEMIA
     Route: 042
     Dates: start: 20070813, end: 20070813
  3. MYLOTARG [Concomitant]
     Route: 042
     Dates: start: 20070827, end: 20070827

REACTIONS (3)
  - CHILLS [None]
  - INJECTION SITE IRRITATION [None]
  - LOSS OF CONSCIOUSNESS [None]
